FAERS Safety Report 8421693-8 (Version None)
Quarter: 2012Q2

REPORT INFORMATION
  Report Type: 
  Country: None (occurrence: None)
  Receive Date: 20120608
  Receipt Date: 20120606
  Transmission Date: 20120825
  Serious: Yes (Hospitalization)
  Sender: FDA-Public Use
  Company Number: NL-AMGEN-NLDCT2011051281

PATIENT
  Age: 64 Year
  Sex: Female
  Weight: 54.9 kg

DRUGS (10)
  1. BLINDED DENOSUMAB [Suspect]
     Indication: BREAST CANCER
     Dosage: UNK
     Dates: start: 20110715
  2. TAXOTERE [Concomitant]
     Dosage: UNK
     Route: 042
     Dates: start: 20110624
  3. ACETAMINOPHEN [Concomitant]
     Dosage: 1000 MG, UNK
     Route: 048
     Dates: start: 20110929, end: 20111007
  4. TRAMADOL HCL [Concomitant]
     Dosage: 50 MG, UNK
     Route: 048
     Dates: start: 20110929, end: 20111007
  5. EPIRUBICIN [Concomitant]
     Dosage: UNK
     Route: 042
     Dates: start: 20110624
  6. CYCLOPHOSPHAMIDE [Concomitant]
     Dosage: UNK
     Route: 042
     Dates: start: 20110624
  7. PLACEBO [Suspect]
     Indication: BREAST CANCER
     Dosage: UNK
     Dates: start: 20110715
  8. CALCICHEW D3 [Concomitant]
     Dosage: UNK
     Route: 048
     Dates: start: 20110711
  9. FLUOROURACIL [Concomitant]
     Dosage: UNK
     Route: 042
     Dates: start: 20110624
  10. MOVICOLON [Concomitant]
     Dosage: UNK
     Route: 048
     Dates: start: 20110929, end: 20111007

REACTIONS (1)
  - PYREXIA [None]
